FAERS Safety Report 9410115 (Version 2)
Quarter: 2013Q3

REPORT INFORMATION
  Report Type: Spontaneous
  Country: CH (occurrence: CH)
  Receive Date: 20130719
  Receipt Date: 20130816
  Transmission Date: 20140515
  Serious: Yes (Hospitalization)
  Sender: FDA-Public Use
  Company Number: CH-PFIZER INC-2013207624

PATIENT
  Age: 51 Year
  Sex: Male

DRUGS (16)
  1. TRIATEC [Suspect]
     Indication: ESSENTIAL HYPERTENSION
     Dosage: 2.5 MG, TWICE A DAY
     Route: 048
     Dates: end: 20121214
  2. XARELTO [Suspect]
     Indication: EMBOLISM
     Dosage: 20 MG, DAILY
     Route: 048
     Dates: start: 20120910, end: 20121031
  3. XARELTO [Suspect]
     Indication: PERIPHERAL ARTERY THROMBOSIS
     Dosage: 20 MG, DAILY
     Route: 048
     Dates: start: 20121104, end: 20121212
  4. DAFALGAN [Suspect]
     Indication: THROMBECTOMY
     Dosage: 3 G, DAILY
     Route: 048
     Dates: start: 20120908, end: 20121031
  5. DAFALGAN [Suspect]
     Indication: PAIN
  6. ALDACTONE [Concomitant]
     Dosage: UNK
     Dates: start: 2007, end: 20121212
  7. ALDACTONE [Concomitant]
     Dosage: UNK
     Dates: start: 20121216
  8. PRADIF [Concomitant]
     Indication: BENIGN PROSTATIC HYPERPLASIA
     Dosage: UNK
     Dates: end: 20121214
  9. TOREM [Concomitant]
     Dosage: UNK
  10. DILATREND [Concomitant]
     Dosage: UNK
  11. TEMESTA [Concomitant]
     Dosage: UNK
  12. BENERVA [Concomitant]
     Dosage: UNK
  13. BECOZYM [Concomitant]
     Dosage: UNK
  14. PANTOZOL [Concomitant]
     Dosage: UNK
  15. DIGOXIN [Concomitant]
     Dosage: UNK
     Dates: end: 20121031
  16. FLUIMUCIL [Concomitant]
     Dosage: UNK

REACTIONS (10)
  - Hepatocellular injury [Recovered/Resolved]
  - Nausea [Unknown]
  - Vomiting [Unknown]
  - Alanine aminotransferase increased [Recovered/Resolved]
  - Hyperbilirubinaemia [Recovered/Resolved]
  - Vertigo [Unknown]
  - Hepatocellular injury [Unknown]
  - Toxicity to various agents [Unknown]
  - Renal failure acute [Unknown]
  - Diarrhoea [Unknown]
